FAERS Safety Report 18135017 (Version 1)
Quarter: 2020Q3

REPORT INFORMATION
  Report Type: Spontaneous
  Country: US (occurrence: US)
  Receive Date: 20200810
  Receipt Date: 20200810
  Transmission Date: 20201103
  Serious: Yes (Other)
  Sender: FDA-Public Use
  Company Number: None

PATIENT
  Age: 18 Year
  Sex: Female
  Weight: 102.06 kg

DRUGS (2)
  1. MELATONIN [Concomitant]
     Active Substance: MELATONIN
  2. NEXPLANON [Suspect]
     Active Substance: ETONOGESTREL
     Dates: start: 20180917

REACTIONS (4)
  - Fatigue [None]
  - Device dislocation [None]
  - Menstrual disorder [None]
  - Tenderness [None]

NARRATIVE: CASE EVENT DATE: 20200221
